FAERS Safety Report 13292761 (Version 8)
Quarter: 2017Q4

REPORT INFORMATION
  Report Type: Spontaneous
  Country: US (occurrence: US)
  Receive Date: 20170303
  Receipt Date: 20171017
  Transmission Date: 20180320
  Serious: Yes (Congenital Anomaly, Other)
  Sender: FDA-Public Use
  Company Number: PHEH2017US006469

PATIENT
  Sex: Male

DRUGS (3)
  1. ZOFRAN [Suspect]
     Active Substance: ONDANSETRON HYDROCHLORIDE
     Indication: FOETAL EXPOSURE DURING PREGNANCY
     Route: 064
  2. ZOFRAN [Suspect]
     Active Substance: ONDANSETRON HYDROCHLORIDE
     Indication: FOETAL EXPOSURE DURING PREGNANCY
     Dosage: MOTHER^S DOSE: 1.56 ML, UNK
     Route: 064
  3. ZOFRAN [Suspect]
     Active Substance: ONDANSETRON HYDROCHLORIDE
     Indication: FOETAL EXPOSURE DURING PREGNANCY
     Dosage: MOTHER^S DOSE: 8 MG, UNK
     Route: 064

REACTIONS (26)
  - Left-to-right cardiac shunt [Unknown]
  - Fever neonatal [Unknown]
  - Injury [Unknown]
  - Hyperbilirubinaemia neonatal [Unknown]
  - Atrial septal defect [Unknown]
  - Right ventricular dilatation [Unknown]
  - Bronchial hyperreactivity [Unknown]
  - Right ventricular hypertrophy [Unknown]
  - Right atrial dilatation [Unknown]
  - Right atrial enlargement [Unknown]
  - Sepsis neonatal [Unknown]
  - Cough [Unknown]
  - Pulmonary valve stenosis congenital [Unknown]
  - Foetal exposure during pregnancy [Unknown]
  - Leukocytosis [Unknown]
  - Cardiac murmur [Unknown]
  - Transient tachypnoea of the newborn [Unknown]
  - Jaundice neonatal [Unknown]
  - Patent ductus arteriosus [Unknown]
  - Metabolic acidosis [Unknown]
  - Pneumonia [Unknown]
  - Neonatal hyponatraemia [Unknown]
  - Neonatal respiratory distress syndrome [Unknown]
  - Premature baby [Unknown]
  - Dehydration [Unknown]
  - Right ventricular enlargement [Unknown]

NARRATIVE: CASE EVENT DATE: 20020718
